FAERS Safety Report 18114234 (Version 1)
Quarter: 2020Q3

REPORT INFORMATION
  Report Type: Spontaneous
  Country: ES (occurrence: ES)
  Receive Date: 20200805
  Receipt Date: 20200805
  Transmission Date: 20201103
  Serious: Yes (Hospitalization)
  Sender: FDA-Public Use
  Company Number: ES-MYLANLABS-2020M1069365

PATIENT
  Age: 72 Year
  Sex: Female

DRUGS (5)
  1. MEPIVACAINE [Concomitant]
     Active Substance: MEPIVACAINE HYDROCHLORIDE
     Indication: GENERAL ANAESTHESIA
     Dosage: UNK
     Route: 065
  2. NOREPINEPHRINE. [Concomitant]
     Active Substance: NOREPINEPHRINE
     Indication: HYPOTENSION
     Dosage: 0.1 MICROGRAM/KILOGRAM, QMINUTE
  3. LEVOBUPIVACAINE [Concomitant]
     Active Substance: LEVOBUPIVACAINE
     Indication: GENERAL ANAESTHESIA
     Dosage: UNK
     Route: 065
  4. NALOXONE [Suspect]
     Active Substance: NALOXONE
     Indication: COMA
     Dosage: 1.2 MILLIGRAM
     Route: 065
  5. FLUMAZENIL. [Suspect]
     Active Substance: FLUMAZENIL
     Indication: COMA
     Dosage: 0.6 MILLIGRAM
     Route: 065

REACTIONS (1)
  - Drug ineffective [Unknown]
